FAERS Safety Report 9318491 (Version 1)
Quarter: 2013Q2

REPORT INFORMATION
  Report Type: Spontaneous
  Country: US (occurrence: US)
  Receive Date: 20130530
  Receipt Date: 20130530
  Transmission Date: 20140414
  Serious: No
  Sender: FDA-Public Use
  Company Number: US-GLAXOSMITHKLINE-A1015655A

PATIENT
  Age: 49 Year
  Sex: Female

DRUGS (2)
  1. VENTOLIN [Suspect]
     Indication: ASTHMA
     Route: 055
     Dates: start: 201303
  2. ADVAIR [Concomitant]

REACTIONS (3)
  - Tremor [Recovered/Resolved]
  - Dyspnoea [Unknown]
  - Incorrect dose administered [Recovered/Resolved]
